FAERS Safety Report 17229638 (Version 1)
Quarter: 2020Q1

REPORT INFORMATION
  Report Type: Spontaneous
  Country: DE (occurrence: DE)
  Receive Date: 20200103
  Receipt Date: 20200103
  Transmission Date: 20200409
  Serious: Yes (Congenital Anomaly, Other)
  Sender: FDA-Public Use
  Company Number: DE-MYLANLABS-2019M1131646

PATIENT
  Age: 1 Day
  Sex: Female
  Weight: 4.24 kg

DRUGS (2)
  1. SERTRALINE [Suspect]
     Active Substance: SERTRALINE HYDROCHLORIDE
     Indication: PERINATAL DEPRESSION
     Dosage: 100 [MG/D ]
     Route: 064
     Dates: start: 20180705, end: 20190413
  2. AGYRAX                             /00072802/ [Concomitant]
     Indication: MORNING SICKNESS
     Dosage: 25 [MG/D ]
     Route: 064

REACTIONS (8)
  - Foetal exposure during pregnancy [Recovered/Resolved]
  - Atrial septal defect [Not Recovered/Not Resolved]
  - Patent ductus arteriosus [Not Recovered/Not Resolved]
  - Neonatal asphyxia [Recovered/Resolved]
  - Respiratory disorder neonatal [Recovered/Resolved]
  - Large for dates baby [Unknown]
  - Ventricular septal defect [Not Recovered/Not Resolved]
  - Neonatal infection [Recovered/Resolved]

NARRATIVE: CASE EVENT DATE: 20190413
